FAERS Safety Report 14244777 (Version 1)
Quarter: 2017Q4

REPORT INFORMATION
  Report Type: Spontaneous
  Country: UA (occurrence: UA)
  Receive Date: 20171201
  Receipt Date: 20171201
  Transmission Date: 20180321
  Serious: Yes (Other)
  Sender: FDA-Public Use
  Company Number: UA-BIOMARINAP-UA-2014-104767

PATIENT
  Sex: Female

DRUGS (1)
  1. NAGLAZYME [Suspect]
     Active Substance: GALSULFASE
     Indication: MUCOPOLYSACCHARIDOSIS VI
     Dosage: 15 MG, UNK
     Route: 042
     Dates: start: 2013

REACTIONS (4)
  - Papilloedema [Unknown]
  - Corneal oedema [Unknown]
  - Blindness [Unknown]
  - Corneal opacity [Unknown]
